FAERS Safety Report 4471184-4 (Version None)
Quarter: 2004Q4

REPORT INFORMATION
  Report Type: 
  Country: None (occurrence: None)
  Receive Date: 20041011
  Receipt Date: 20031001
  Transmission Date: 20050328
  Serious: Yes (Hospitalization)
  Sender: FDA-Public Use
  Company Number: US-MERCK-0310USA00220

PATIENT
  Age: 57 Year
  Sex: Male

DRUGS (8)
  1. FIORICET TABLETS [Concomitant]
     Indication: CLUSTER HEADACHE
     Route: 065
  2. HYDROCHLOROTHIAZIDE [Concomitant]
     Indication: HYPERTENSION
     Route: 065
  3. HYDROCODONE BITARTRATE [Concomitant]
     Route: 065
  4. INDOMETHACIN [Concomitant]
     Indication: CLUSTER HEADACHE
     Route: 065
  5. PREDNISONE [Concomitant]
     Indication: CLUSTER HEADACHE
     Route: 065
  6. MAXALT [Suspect]
     Indication: CLUSTER HEADACHE
     Route: 048
  7. MAXALT [Suspect]
     Route: 048
  8. VALSARTAN [Concomitant]
     Indication: HYPERTENSION
     Route: 065

REACTIONS (2)
  - OFF LABEL USE [None]
  - RENAL INFARCT [None]
